FAERS Safety Report 13670416 (Version 1)
Quarter: 2017Q2

REPORT INFORMATION
  Report Type: Spontaneous
  Country: FR (occurrence: FR)
  Receive Date: 20170620
  Receipt Date: 20170620
  Transmission Date: 20170830
  Serious: Yes (Other)
  Sender: FDA-Public Use
  Company Number: FR-BAYER-2017-111948

PATIENT
  Age: 89 Year
  Sex: Female
  Weight: 55 kg

DRUGS (2)
  1. STIVARGA [Suspect]
     Active Substance: REGORAFENIB
     Indication: COLORECTAL CANCER STAGE IV
     Dosage: UNK
     Dates: start: 20150330
  2. STIVARGA [Suspect]
     Active Substance: REGORAFENIB
     Indication: METASTASES TO LUNG

REACTIONS (25)
  - Gout [None]
  - Skin toxicity [None]
  - Palmar-plantar erythrodysaesthesia syndrome [None]
  - Infection [None]
  - Fatigue [None]
  - Mucosal toxicity [None]
  - Neutropenia [None]
  - Neurotoxicity [None]
  - Arthralgia [None]
  - Senile osteoporosis [Not Recovered/Not Resolved]
  - Off label use [None]
  - Blood thyroid stimulating hormone increased [None]
  - Fall [None]
  - Hyperuricaemia [None]
  - Humerus fracture [None]
  - Pain [None]
  - Vomiting [None]
  - Thrombocytopenia [None]
  - Anaemia [None]
  - Angiotensin converting enzyme increased [None]
  - Weight decreased [None]
  - Gastrointestinal disorder [None]
  - Skin lesion [None]
  - Alopecia [None]
  - Tumour marker increased [None]

NARRATIVE: CASE EVENT DATE: 20150411
